FAERS Safety Report 8570700-0 (Version None)
Quarter: 2012Q3

REPORT INFORMATION
  Report Type: 
  Country: None (occurrence: None)
  Receive Date: 20120805
  Receipt Date: 20120716
  Transmission Date: 20120928
  Serious: No
  Sender: FDA-Public Use
  Company Number: US-009507513-2012SP036420

PATIENT

DRUGS (1)
  1. CLARITIN REDITABS [Suspect]
     Indication: HYPERSENSITIVITY
     Dosage: 5 MG, ONCE
     Route: 048
     Dates: start: 20120601

REACTIONS (4)
  - NO THERAPEUTIC RESPONSE [None]
  - SOMNOLENCE [None]
  - FEELING ABNORMAL [None]
  - SLUGGISHNESS [None]
